FAERS Safety Report 8103029-5 (Version None)
Quarter: 2012Q1

REPORT INFORMATION
  Report Type: 
  Country: None (occurrence: None)
  Receive Date: 20120201
  Receipt Date: 20120201
  Transmission Date: 20120608
  Serious: No
  Sender: FDA-Public Use
  Company Number: None

PATIENT
  Age: 48 Year
  Sex: Female
  Weight: 70.306 kg

DRUGS (2)
  1. FLUOXETINE [Suspect]
     Indication: DEPRESSION
     Dosage: 2 20MG CAPSULES
     Route: 048
     Dates: start: 20120125, end: 20120130
  2. FLUOXETINE [Suspect]
     Indication: PREMENSTRUAL SYNDROME
     Dosage: 2 20MG CAPSULES
     Route: 048
     Dates: start: 20120125, end: 20120130

REACTIONS (3)
  - DRUG INEFFECTIVE [None]
  - ANXIETY [None]
  - DEPRESSION [None]
